FAERS Safety Report 8174660-6 (Version None)
Quarter: 2012Q1

REPORT INFORMATION
  Report Type: 
  Country: None (occurrence: None)
  Receive Date: 20120229
  Receipt Date: 20120221
  Transmission Date: 20120608
  Serious: No
  Sender: FDA-Public Use
  Company Number: US-B.I. PHARMACEUTICALS,INC./RIDGEFIELD-2012-BP-03555BP

PATIENT
  Sex: Male

DRUGS (1)
  1. CATAPRES-TTS-1 [Suspect]
     Dosage: 0.3 MG

REACTIONS (1)
  - BLOOD PRESSURE INADEQUATELY CONTROLLED [None]
